FAERS Safety Report 14012461 (Version 1)
Quarter: 2017Q3

REPORT INFORMATION
  Report Type: Spontaneous
  Country: US (occurrence: US)
  Receive Date: 20170926
  Receipt Date: 20170926
  Transmission Date: 20171128
  Serious: No
  Sender: FDA-Public Use
  Company Number: US-BAYER-2017-182839

PATIENT
  Age: 85 Year
  Sex: Female
  Weight: 69 kg

DRUGS (5)
  1. METOPROLOL TARTRATE. [Concomitant]
     Active Substance: METOPROLOL TARTRATE
  2. MIRALAX [Suspect]
     Active Substance: POLYETHYLENE GLYCOL 3350
     Indication: GASTROINTESTINAL DISORDER
     Dosage: UNK UNK, QD (1 CAP FULL IN ORANGE JUICE IN THE A.M. DOSE)
     Route: 048
     Dates: start: 2015, end: 20170921
  3. MIRALAX [Suspect]
     Active Substance: POLYETHYLENE GLYCOL 3350
     Indication: CONSTIPATION
     Dosage: UNK UNK, QOD (1 CAP FULL IN ORANGE JUICE IN THE A.M. DOSE)
     Route: 048
     Dates: start: 2015, end: 20170921
  4. ALPRAZOLAM. [Concomitant]
     Active Substance: ALPRAZOLAM
  5. MECLIZINE [Concomitant]
     Active Substance: MECLIZINE HYDROCHLORIDE

REACTIONS (11)
  - Diarrhoea [Unknown]
  - Incorrect drug administration duration [Unknown]
  - Inappropriate prescribing [Unknown]
  - Expired product administered [Unknown]
  - Off label use [Unknown]
  - Constipation [Unknown]
  - Fall [Unknown]
  - Bowel movement irregularity [Unknown]
  - Drug ineffective [Unknown]
  - Dizziness [Unknown]
  - Balance disorder [Unknown]

NARRATIVE: CASE EVENT DATE: 2015
